FAERS Safety Report 5528541-4 (Version None)
Quarter: 2007Q4

REPORT INFORMATION
  Report Type: 
  Country: None (occurrence: None)
  Receive Date: 20071121
  Receipt Date: 20071112
  Transmission Date: 20080405
  Serious: Yes (Hospitalization)
  Sender: FDA-Public Use
  Company Number: 8028039

PATIENT
  Age: 6 Year
  Sex: Male

DRUGS (2)
  1. XOZAL [Suspect]
     Indication: HYPERSENSITIVITY
     Dosage: 56 GTT 2/D PO
     Route: 048
     Dates: start: 20071107, end: 20071111
  2. XOZAL [Suspect]
     Indication: RHINITIS
     Dosage: 56 GTT 2/D PO
     Route: 048
     Dates: start: 20071107, end: 20071111

REACTIONS (1)
  - ARRHYTHMIA [None]
